FAERS Safety Report 19920521 (Version 1)
Quarter: 2021Q4

REPORT INFORMATION
  Report Type: Spontaneous
  Country: GB (occurrence: GB)
  Receive Date: 20211005
  Receipt Date: 20211005
  Transmission Date: 20220303
  Serious: Yes (Hospitalization, Disabling, Other)
  Sender: FDA-Public Use
  Company Number: None

PATIENT
  Age: 8 Year
  Sex: Female
  Weight: 34 kg

DRUGS (5)
  1. ELOCON [Suspect]
     Active Substance: MOMETASONE FUROATE
     Indication: Eczema
     Dosage: UNK
     Route: 061
     Dates: start: 2019
  2. EUMOVATE [Suspect]
     Active Substance: CLOBETASONE BUTYRATE
     Indication: Eczema
     Dosage: UNK
     Route: 061
     Dates: start: 201911, end: 202108
  3. BETNOVATE [Suspect]
     Active Substance: BETAMETHASONE
     Indication: Eczema
     Dosage: UNK
     Route: 061
     Dates: start: 2019
  4. HYDROCORTISONE [Suspect]
     Active Substance: HYDROCORTISONE
     Indication: Eczema
     Dosage: UNK
     Route: 061
     Dates: start: 2019
  5. AZATHIOPRINE [Concomitant]
     Active Substance: AZATHIOPRINE
     Dosage: UNK

REACTIONS (5)
  - Skin burning sensation [Not Recovered/Not Resolved]
  - Skin exfoliation [Not Recovered/Not Resolved]
  - Skin weeping [Not Recovered/Not Resolved]
  - Lymphadenopathy [Not Recovered/Not Resolved]
  - Eczema [Not Recovered/Not Resolved]

NARRATIVE: CASE EVENT DATE: 20191201
